FAERS Safety Report 9943892 (Version 1)
Quarter: 2014Q1

REPORT INFORMATION
  Report Type: Spontaneous
  Country: US (occurrence: US)
  Receive Date: 20140303
  Receipt Date: 20140303
  Transmission Date: 20141002
  Serious: No
  Sender: FDA-Public Use
  Company Number: US-GILEAD-2012-0057559

PATIENT
  Sex: Female

DRUGS (8)
  1. RANEXA [Suspect]
     Indication: PRODUCT USED FOR UNKNOWN INDICATION
     Dosage: 500 MG, UNK
     Route: 048
  2. RANEXA [Suspect]
     Dosage: 1000 MG, UNK
     Route: 048
  3. CRESTOR [Concomitant]
  4. NICOTINE [Concomitant]
  5. METOPROLOL [Concomitant]
  6. LANSOPRAZOLE [Concomitant]
  7. RAMIPRIL [Concomitant]
  8. EFFIENT [Concomitant]

REACTIONS (6)
  - Palpitations [Unknown]
  - Loss of consciousness [Unknown]
  - Fatigue [Unknown]
  - Paraesthesia [Unknown]
  - Tinnitus [Unknown]
  - Dizziness [Unknown]
